FAERS Safety Report 14542902 (Version 1)
Quarter: 2018Q1

REPORT INFORMATION
  Report Type: Spontaneous
  Country: FR (occurrence: FR)
  Receive Date: 20180216
  Receipt Date: 20180216
  Transmission Date: 20180509
  Serious: Yes (Other)
  Sender: FDA-Public Use
  Company Number: FR-BAUSCH-BL-2018-004217

PATIENT
  Age: 51 Year
  Sex: Female

DRUGS (1)
  1. OFLOXACINE [Suspect]
     Active Substance: OFLOXACIN
     Indication: PYELONEPHRITIS
     Route: 048

REACTIONS (4)
  - Cerebellar syndrome [Recovering/Resolving]
  - Balance disorder [Recovering/Resolving]
  - Language disorder [Recovering/Resolving]
  - Extrasystoles [Not Recovered/Not Resolved]

NARRATIVE: CASE EVENT DATE: 20180124
